FAERS Safety Report 9412182 (Version 2)
Quarter: 2013Q2

REPORT INFORMATION
  Report Type: Spontaneous
  Country: US (occurrence: None)
  Receive Date: 20130503
  Receipt Date: 20130612
  Transmission Date: 20140414
  Serious: Yes (Hospitalization, Other)
  Sender: FDA-Public Use
  Company Number: 2012-003477

PATIENT
  Age: 61 Year
  Sex: Female

DRUGS (49)
  1. ACTONEL [Suspect]
     Indication: OSTEOPENIA
     Route: 048
     Dates: start: 200007, end: 20020220
  2. ACTONEL [Suspect]
     Indication: OSTEOPOROSIS
     Route: 048
     Dates: start: 200007, end: 20020220
  3. ACTONEL [Suspect]
     Route: 048
     Dates: start: 200007, end: 20020220
  4. ACTONEL [Suspect]
     Route: 048
     Dates: start: 200007, end: 20020220
  5. FOSAMAX (ALENDRONATE SODIUM) [Suspect]
     Indication: OSTEOPENIA
     Route: 048
     Dates: start: 200204, end: 2006
  6. FOSAMAX (ALENDRONATE SODIUM) [Suspect]
     Route: 048
     Dates: start: 200204, end: 2006
  7. FOSAMAX (ALENDRONATE SODIUM) [Suspect]
     Route: 048
     Dates: start: 200204, end: 2006
  8. FOSAMAX (ALENDRONATE SODIUM) [Suspect]
     Route: 048
     Dates: start: 200204, end: 2006
  9. FOSAMAX PLUS D (ALENDRONATE SODIUM, COLECALCIFEROL) [Suspect]
     Indication: OSTEOPENIA
     Route: 048
     Dates: start: 200612, end: 200803
  10. FOSAMAX PLUS D (ALENDRONATE SODIUM, COLECALCIFEROL) [Suspect]
     Route: 048
     Dates: start: 200612, end: 200803
  11. FOSAMAX PLUS D (ALENDRONATE SODIUM, COLECALCIFEROL) [Suspect]
     Route: 048
     Dates: start: 200612, end: 200803
  12. FOSAMAX PLUS D (ALENDRONATE SODIUM, COLECALCIFEROL) [Suspect]
     Route: 048
     Dates: start: 200612, end: 200803
  13. ALENDRONATE (ALENDRONATE SODIUM) [Suspect]
     Indication: OSTEOPENIA
     Route: 048
     Dates: start: 200803, end: 2008
  14. ALENDRONATE (ALENDRONATE SODIUM) [Suspect]
     Route: 048
     Dates: start: 200803, end: 2008
  15. ALENDRONATE (ALENDRONATE SODIUM) [Suspect]
     Route: 048
     Dates: start: 200803, end: 2008
  16. ALENDRONATE (ALENDRONATE SODIUM) [Suspect]
     Route: 048
     Dates: start: 200803, end: 2008
  17. PREMARIN (ESTROGENS CONJUGATED) [Concomitant]
  18. ESTRACE (ESTRADIOL) [Concomitant]
  19. VIVELLE   /00045401/ (ESTRADIOL) [Concomitant]
  20. ALBUTEROL  /00139501/ (SALBUTAMOL) [Concomitant]
  21. AZMACORT (TRIAMCINOLONE ACETONIDE) [Concomitant]
  22. ADVAIR (FLUTICASONE PROPIONATE, SALMETEROL XINAFOATE) [Concomitant]
  23. FLOVENT (FLUTICASONE PROPIONATE) [Concomitant]
  24. FLONASE (FLUTICASONE PROPIONATE) [Concomitant]
  25. SINGULAIR [Concomitant]
  26. ZYRTEC-D [Concomitant]
  27. CLARITIN   /00917501/ (LORATADINE) [Concomitant]
  28. DIPHENHYDRAMINE (DIPHENHYDRAMINE) [Concomitant]
  29. BROMPHENIRAMINE W/PSEUDOEPHEDRINE (BROMPHENIRAMINE, PSEUDOEPHEDRINE) [Concomitant]
  30. BENZONATATE (BENZONATATE) [Concomitant]
  31. ORPHENADRINE, COMBINATIONS [Concomitant]
  32. PROLEX D (GUAIFENESIN, PHENYLEPHRINE HYDROCHLORIDE) [Concomitant]
  33. LORAZEPAM (LORAZEPAM) [Concomitant]
  34. AMBIEN (ZOLPIDEM TARTRATE) [Concomitant]
  35. PAXIL (PAROXETINE HYDROCHLORIDE) [Concomitant]
  36. ZOLOFT (SERTRALINE HYDROCHLORIDE) [Concomitant]
  37. EFFEXOR (VENLAFAXINE HYDROCHLORIDE) [Concomitant]
  38. NEURONTIN (GABAPENTIN) [Concomitant]
  39. ACYCLOVIR  /00587301/ (ACICLOVIR) [Concomitant]
  40. ACIPHEX (RABEPRAZOLE SODIUM) [Concomitant]
  41. PRILOSEC  /00661201/ (OMEPRAZOLE) [Concomitant]
  42. HYDROCORTISONE (HYDROCORTISONE) [Concomitant]
  43. CAPTOPRIL HYDROCHLOROTHIAZIDE (CAPTOPRIL, HYDROCHLOROTHIAZIDE) [Concomitant]
  44. VERAPAMIL (VERAPAMIL) [Concomitant]
  45. LOTREL (AMLODIPINE BESILATE, BENAZEPRIL HYDROCHLORIDE) [Concomitant]
  46. CIPROFLOXACIN (CIPROFLOXACIN) [Concomitant]
  47. ZITHROMAX (AZITHROMYCIN) [Concomitant]
  48. VITAMIN D  /00107901/ (ERGOCALCIFEROL) [Concomitant]
  49. RECLAST [Suspect]
     Dosage: YEARLY
     Route: 042
     Dates: start: 200910, end: 201010

REACTIONS (12)
  - Stress fracture [None]
  - Femur fracture [None]
  - Fracture displacement [None]
  - Fall [None]
  - Pain in extremity [None]
  - Arthralgia [None]
  - Fracture nonunion [None]
  - Device breakage [None]
  - Bone disorder [None]
  - Low turnover osteopathy [None]
  - Pain [None]
  - Urticaria [None]
